FAERS Safety Report 22844990 (Version 4)
Quarter: 2025Q2

REPORT INFORMATION
  Report Type: Spontaneous
  Country: GB (occurrence: GB)
  Receive Date: 20230821
  Receipt Date: 20250403
  Transmission Date: 20250717
  Serious: Yes (Hospitalization)
  Sender: MYLAN
  Company Number: GB-MYLANLABS-2023M1040788

PATIENT
  Age: 33 Year
  Sex: Male

DRUGS (3)
  1. CLOZARIL [Suspect]
     Active Substance: CLOZAPINE
     Indication: Schizophrenia
     Dates: start: 20230406, end: 20230607
  2. CLOZARIL [Suspect]
     Active Substance: CLOZAPINE
     Dates: start: 20230615, end: 20231115
  3. CLOZARIL [Suspect]
     Active Substance: CLOZAPINE

REACTIONS (7)
  - Hospitalisation [Unknown]
  - Full blood count abnormal [Unknown]
  - Mean cell haemoglobin concentration increased [Unknown]
  - Basophil count increased [Unknown]
  - Tachycardia [Recovered/Resolved]
  - Product dose omission issue [Unknown]
  - Therapy interrupted [Recovered/Resolved]

NARRATIVE: CASE EVENT DATE: 20230411
